FAERS Safety Report 8432788 (Version 7)
Quarter: 2012Q4

REPORT INFORMATION
  Report Type: 
  Country: US (occurrence: US)
  Receive Date: 20120229
  Receipt Date: 20121221
  Transmission Date: 20130627
  Serious: Yes (Hospitalization)
  Sender: FDA-Public Use
  Company Number: US-ACTELION-A-US2012-61462

PATIENT
  Age: 70 Year
  Sex: Male

DRUGS (4)
  1. VELETRI [Suspect]
     Indication: PULMONARY ARTERIAL HYPERTENSION
     Dosage: 60 ng/kg, per min
     Route: 042
     Dates: start: 20110401
  2. VELETRI [Suspect]
     Dosage: 60 ng/kg, per min
     Route: 042
  3. TRACLEER [Suspect]
     Indication: PULMONARY ARTERIAL HYPERTENSION
     Dosage: UNK
     Route: 048
     Dates: start: 20110906
  4. ASPIRIN [Concomitant]

REACTIONS (10)
  - Haemoglobin decreased [Unknown]
  - Haematochezia [Not Recovered/Not Resolved]
  - Dyspnoea [Unknown]
  - Catheter site infection [Unknown]
  - Pulmonary oedema [Not Recovered/Not Resolved]
  - Device connection issue [Recovered/Resolved]
  - Medical device complication [Unknown]
  - Cardiac failure congestive [Unknown]
  - Decreased appetite [Not Recovered/Not Resolved]
  - Asthenia [Unknown]
